FAERS Safety Report 5632331-1 (Version None)
Quarter: 2008Q1

REPORT INFORMATION
  Report Type: 
  Country: None (occurrence: None)
  Receive Date: 20080220
  Receipt Date: 20080212
  Transmission Date: 20080703
  Serious: Yes (Hospitalization)
  Sender: FDA-Public Use
  Company Number: SE-PURDUE-GBR_2008_0003750

PATIENT
  Age: 72 Year
  Sex: Female

DRUGS (4)
  1. OXYCONTIN 20 MG DEPOTTABLETT [Suspect]
     Indication: POSTOPERATIVE ANALGESIA
     Dosage: 20 MG, DAILY
     Route: 048
     Dates: start: 20071123, end: 20071125
  2. FRAGMIN [Concomitant]
     Indication: DRUG USE FOR UNKNOWN INDICATION
     Dosage: 5000 IU, UNK
     Route: 042
  3. DICLOFENAC SODIUM [Concomitant]
     Indication: DRUG USE FOR UNKNOWN INDICATION
     Route: 065
  4. PANODIL FORTE [Concomitant]
     Indication: DRUG USE FOR UNKNOWN INDICATION
     Dosage: 1 GRAM, UNK
     Route: 065

REACTIONS (3)
  - DEPRESSED LEVEL OF CONSCIOUSNESS [None]
  - HYPERHIDROSIS [None]
  - PALLOR [None]
